FAERS Safety Report 26190608 (Version 1)
Quarter: 2025Q4

REPORT INFORMATION
  Report Type: Spontaneous
  Country: US (occurrence: None)
  Receive Date: 20251222
  Receipt Date: 20251222
  Transmission Date: 20260117
  Serious: Yes (Other)
  Sender: FDA-CTU
  Company Number: None

PATIENT
  Age: 34 Year
  Sex: Female
  Weight: 94.95 kg

DRUGS (1)
  1. 7-HYDROXYMITRAGYNINE [Suspect]
     Active Substance: 7-HYDROXYMITRAGYNINE
     Dates: start: 20251222, end: 20251222

REACTIONS (11)
  - Vomiting [None]
  - Asthenia [None]
  - Heart rate decreased [None]
  - Cardiovascular disorder [None]
  - Cyanosis [None]
  - Dizziness [None]
  - Somnolence [None]
  - Tremor [None]
  - Abdominal pain upper [None]
  - Hypotension [None]
  - Nausea [None]

NARRATIVE: CASE EVENT DATE: 20251222
